FAERS Safety Report 16767713 (Version 2)
Quarter: 2019Q3

REPORT INFORMATION
  Report Type: Not Available
  Country: ES (occurrence: ES)
  Receive Date: 20190903
  Receipt Date: 20190905
  Transmission Date: 20191005
  Serious: Yes (Life-Threatening, Hospitalization, Other)
  Sender: FDA-Public Use
  Company Number: ES-SYNTHON BV-IN51PV19_49571

PATIENT
  Age: 65 Year
  Sex: Male

DRUGS (6)
  1. ENALAPRIL MALEATO [Interacting]
     Active Substance: ENALAPRIL MALEATE
     Indication: HYPERTENSION
  2. TAMSULOSIN [Suspect]
     Active Substance: TAMSULOSIN
     Indication: BENIGN PROSTATIC HYPERPLASIA
     Dosage: 0.4 MILLIGRAM, QD
     Route: 048
     Dates: start: 20180518, end: 20180621
  3. DEXKETOPROFENO [DEXKETOPROFEN] [Interacting]
     Active Substance: DEXKETOPROFEN
     Indication: PAIN
  4. CLEXANE [Concomitant]
     Active Substance: ENOXAPARIN SODIUM
     Indication: PROPHYLAXIS
     Dosage: ( 4.000 UI (40 MG)/ 0,4 ML  SOLUCION INYECTABLE EN JERINGA PRECARGADA , 2 JERINGAS PRECARGADAS DE 0,
  5. METFORMINA [METFORMIN] [Concomitant]
     Active Substance: METFORMIN HYDROCHLORIDE
     Indication: DIABETES MELLITUS
  6. DAONIL [Concomitant]
     Active Substance: GLYBURIDE
     Indication: DIABETES MELLITUS
     Dosage: UNK

REACTIONS (2)
  - Acute kidney injury [Recovering/Resolving]
  - Hyperkalaemia [Recovered/Resolved]

NARRATIVE: CASE EVENT DATE: 20180620
